FAERS Safety Report 15428986 (Version 1)
Quarter: 2018Q3

REPORT INFORMATION
  Report Type: Spontaneous
  Country: US (occurrence: US)
  Receive Date: 20180919
  Receipt Date: 20180919
  Transmission Date: 20181010
  Serious: No
  Sender: FDA-Public Use
  Company Number: None

PATIENT
  Age: 75 Year
  Sex: Female
  Weight: 51.71 kg

DRUGS (2)
  1. CIMZIA [Suspect]
     Active Substance: CERTOLIZUMAB PEGOL
     Indication: OSTEOPOROSIS
     Dosage: ?          OTHER FREQUENCY:AS DIRECTED;?
     Route: 058
     Dates: start: 201801
  2. CIMZIA [Suspect]
     Active Substance: CERTOLIZUMAB PEGOL
     Indication: RHEUMATOID ARTHRITIS
     Dosage: ?          OTHER FREQUENCY:AS DIRECTED;?
     Route: 058
     Dates: start: 201801

REACTIONS (1)
  - Pain [None]
